FAERS Safety Report 12408514 (Version 4)
Quarter: 2016Q4

REPORT INFORMATION
  Report Type: Report from Study
  Country: GB (occurrence: GB)
  Receive Date: 20160526
  Receipt Date: 20161011
  Transmission Date: 20170207
  Serious: Yes (Death, Other)
  Sender: FDA-Public Use
  Company Number: GB-CELGENEUS-GBR-2016053646

PATIENT
  Age: 69 Year
  Sex: Female

DRUGS (1)
  1. REVLIMID [Suspect]
     Active Substance: LENALIDOMIDE
     Indication: PLASMA CELL MYELOMA
     Route: 048
     Dates: start: 20130731, end: 20160504

REACTIONS (1)
  - Malignant neoplasm of unknown primary site [Fatal]

NARRATIVE: CASE EVENT DATE: 20160427
